FAERS Safety Report 21136251 (Version 1)
Quarter: 2022Q3

REPORT INFORMATION
  Report Type: Report from Study
  Country: KE (occurrence: KE)
  Receive Date: 20220727
  Receipt Date: 20220727
  Transmission Date: 20221027
  Serious: Yes (Death)
  Sender: FDA-Public Use
  Company Number: KE-MYLANLABS-2022M1081683

PATIENT

DRUGS (1)
  1. LOPINAVIR\RITONAVIR [Suspect]
     Active Substance: LOPINAVIR\RITONAVIR
     Indication: HIV infection
     Dosage: UNK, BID, UNK (40/10MG PELLETS TWICE DAILY)
     Route: 065

REACTIONS (1)
  - Death [Fatal]
